FAERS Safety Report 19873743 (Version 4)
Quarter: 2024Q2

REPORT INFORMATION
  Report Type: Spontaneous
  Country: DE (occurrence: DE)
  Receive Date: 20210923
  Receipt Date: 20240402
  Transmission Date: 20240717
  Serious: Yes (Other)
  Sender: FDA-Public Use
  Company Number: DE-TAKEDA-2021TUS045730

PATIENT
  Age: 23 Year
  Sex: Female

DRUGS (2)
  1. ENTYVIO [Suspect]
     Active Substance: VEDOLIZUMAB
     Indication: Crohn^s disease
     Dosage: UNK
     Route: 058
     Dates: start: 202104
  2. AZATHIOPRINE [Suspect]
     Active Substance: AZATHIOPRINE
     Indication: Crohn^s disease
     Dosage: UNK
     Route: 065

REACTIONS (9)
  - Pancreatitis acute [Unknown]
  - Dermatitis allergic [Unknown]
  - Abdominal pain upper [Unknown]
  - Poor peripheral circulation [Unknown]
  - Asthenia [Unknown]
  - Alopecia [Unknown]
  - Hypersensitivity [Unknown]
  - Back pain [Unknown]
  - Nausea [Unknown]
